FAERS Safety Report 4456384-1 (Version None)
Quarter: 2004Q3

REPORT INFORMATION
  Report Type: 
  Country: None (occurrence: None)
  Receive Date: 20040902
  Receipt Date: 20040607
  Transmission Date: 20050211
  Serious: No
  Sender: FDA-Public Use
  Company Number: 200415434BWH

PATIENT
  Age: 60 Year
  Sex: Male
  Weight: 108.8633 kg

DRUGS (13)
  1. LEVITRA [Suspect]
     Indication: ERECTILE DYSFUNCTION
     Dosage: 10 MG, TOTAL DAILY, ORAL
     Route: 048
     Dates: start: 20040201
  2. LEVITRA [Suspect]
     Indication: ERECTILE DYSFUNCTION
     Dosage: 10 MG, TOTAL DAILY, ORAL
     Route: 048
     Dates: start: 20040201
  3. LEVITRA [Suspect]
     Indication: ERECTILE DYSFUNCTION
     Dosage: 10 MG, TOTAL DAILY, ORAL
     Route: 048
     Dates: start: 20040310
  4. ACCUPRIL [Concomitant]
  5. ATENOLOL [Concomitant]
  6. WELCHOL [Concomitant]
  7. DETROL [Concomitant]
  8. ZYRTEC [Concomitant]
  9. RANITIDINE [Concomitant]
  10. ASPIRIN [Concomitant]
  11. FISH OIL [Concomitant]
  12. MULTI-VITAMIN [Concomitant]
  13. VIAGRA [Concomitant]

REACTIONS (7)
  - BLOOD PRESSURE DECREASED [None]
  - CHEST PAIN [None]
  - DIZZINESS [None]
  - ERECTILE DYSFUNCTION [None]
  - HEADACHE [None]
  - HYPERHIDROSIS [None]
  - PARAESTHESIA [None]
